FAERS Safety Report 15066910 (Version 1)
Quarter: 2018Q2

REPORT INFORMATION
  Report Type: Report from Study
  Country: BE (occurrence: BE)
  Receive Date: 20180626
  Receipt Date: 20180626
  Transmission Date: 20180711
  Serious: Yes (Hospitalization)
  Sender: FDA-Public Use
  Company Number: PHHY2018BE024116

PATIENT
  Sex: Male
  Weight: 68.2 kg

DRUGS (1)
  1. ENTRESTO [Suspect]
     Active Substance: SACUBITRIL\VALSARTAN
     Indication: CARDIAC FAILURE CHRONIC
     Dosage: 1 DF (24MG SACUBITRIL AND 26MG VALSARTAN), BID
     Route: 048

REACTIONS (3)
  - Pulmonary oedema [Unknown]
  - Abdominal pain [Unknown]
  - Hypertension [Unknown]

NARRATIVE: CASE EVENT DATE: 2018
